FAERS Safety Report 8086619-8 (Version None)
Quarter: 2012Q1

REPORT INFORMATION
  Report Type: 
  Country: None (occurrence: None)
  Receive Date: 20120128
  Receipt Date: 20110516
  Transmission Date: 20120608
  Serious: No
  Sender: FDA-Public Use
  Company Number: US-ABBOTT-11P-163-0726338-00

PATIENT
  Sex: Male
  Weight: 90.8 kg

DRUGS (2)
  1. HUMIRA [Suspect]
     Indication: PSORIASIS
     Route: 058
     Dates: start: 20090101
  2. UNKNOWN SLEEPING MEDICINE [Concomitant]
     Indication: INSOMNIA
     Dosage: PRN AT NIGHT
     Route: 048

REACTIONS (4)
  - NASOPHARYNGITIS [None]
  - LACRIMATION INCREASED [None]
  - COUGH [None]
  - SNEEZING [None]
